FAERS Safety Report 5015522-2 (Version None)
Quarter: 2006Q2

REPORT INFORMATION
  Report Type: 
  Country: None (occurrence: None)
  Receive Date: 20060601
  Receipt Date: 20060309
  Transmission Date: 20061013
  Serious: Yes (Hospitalization)
  Sender: FDA-Public Use
  Company Number: NLWYE459610MAR06

PATIENT
  Sex: Female

DRUGS (18)
  1. ENBREL [Suspect]
     Indication: RHEUMATOID ARTHRITIS
     Route: 058
     Dates: start: 20060201, end: 20060301
  2. ENBREL [Suspect]
     Indication: OSTEOARTHRITIS
  3. ENBREL [Suspect]
     Indication: OSTEOPOROSIS
  4. EUTHYROX [Concomitant]
     Indication: HYPOTHYROIDISM
  5. ASCAL [Concomitant]
     Indication: CARDIAC DISORDER
  6. UNSPECIFIED ASTHMA MEDICATION [Concomitant]
     Indication: CHRONIC OBSTRUCTIVE PULMONARY DISEASE
  7. NEURONTIN [Concomitant]
  8. PARIET [Concomitant]
  9. PLAQUENIL [Concomitant]
  10. CALCICHEW [Concomitant]
     Indication: OSTEOPOROSIS
  11. ACTONEL [Concomitant]
  12. THEOLAIR [Concomitant]
     Dosage: 250 MG
  13. PREDNISOLONE [Concomitant]
     Dosage: RECENTLY INCREASED FROM 5 TO 10 MG
  14. FUROSEMIDE [Concomitant]
     Dosage: RECENTLY DECREASED FROM 2 MG TO 1 MG
  15. MONO-CEDOCARD [Concomitant]
     Indication: CARDIAC DISORDER
  16. SPIRONOLACTONE [Concomitant]
  17. GLUCOSAMINE [Concomitant]
     Dosage: UNKNOWN
     Dates: start: 20000101
  18. UNSPECIFIED MEDICATION [Concomitant]

REACTIONS (12)
  - C-REACTIVE PROTEIN INCREASED [None]
  - CONDITION AGGRAVATED [None]
  - INGUINAL HERNIA [None]
  - MUSCULOSKELETAL STIFFNESS [None]
  - NAUSEA [None]
  - NECK PAIN [None]
  - PAIN IN EXTREMITY [None]
  - PANCREATIC CARCINOMA [None]
  - PANCREATIC DISORDER [None]
  - RED BLOOD CELL SEDIMENTATION RATE INCREASED [None]
  - RESPIRATORY TRACT INFECTION [None]
  - SHOULDER PAIN [None]
